FAERS Safety Report 21782600 (Version 1)
Quarter: 2022Q4

REPORT INFORMATION
  Report Type: Spontaneous
  Country: NL (occurrence: NL)
  Receive Date: 20221227
  Receipt Date: 20221227
  Transmission Date: 20230113
  Serious: Yes (Hospitalization)
  Sender: FDA-Public Use
  Company Number: NL-FAIRMED-L_2022.10.14_TEMO_1

PATIENT
  Age: 19 Year
  Sex: Male

DRUGS (1)
  1. TEMOZOLOMIDE [Suspect]
     Active Substance: TEMOZOLOMIDE
     Indication: Glioneuronal tumour
     Dosage: UNKNOWN DOSAGE
     Route: 065

REACTIONS (3)
  - Pancytopenia [Unknown]
  - Dyspnoea [Unknown]
  - Drug ineffective [Unknown]
